FAERS Safety Report 10159281 (Version 1)
Quarter: 2014Q2

REPORT INFORMATION
  Report Type: Spontaneous
  Country: US (occurrence: US)
  Receive Date: 20140508
  Receipt Date: 20140508
  Transmission Date: 20141212
  Serious: No
  Sender: FDA-Public Use
  Company Number: US-009507513-1405USA003619

PATIENT
  Age: 37 Year
  Sex: Female
  Weight: 113.38 kg

DRUGS (1)
  1. IMPLANON [Suspect]
     Indication: CONTRACEPTION
     Dosage: UNK, 3 YEAR IMPLANT, IN LEFT ARM
     Route: 059
     Dates: start: 20080421

REACTIONS (3)
  - Weight fluctuation [Unknown]
  - Medical device complication [Unknown]
  - Incorrect drug administration duration [Unknown]
